FAERS Safety Report 21653666 (Version 1)
Quarter: 2022Q4

REPORT INFORMATION
  Report Type: Spontaneous
  Country: DE (occurrence: DE)
  Receive Date: 20221129
  Receipt Date: 20221129
  Transmission Date: 20230113
  Serious: Yes (Other)
  Sender: FDA-Public Use
  Company Number: DE-ALKEM LABORATORIES LIMITED-DE-ALKEM-2022-13150

PATIENT
  Age: 40 Year
  Sex: Female
  Weight: 80 kg

DRUGS (11)
  1. FINGOLIMOD [Suspect]
     Active Substance: FINGOLIMOD
     Indication: Relapsing-remitting multiple sclerosis
     Dosage: 0.5 MILLIGRAMS, (TABLET)
     Route: 048
     Dates: start: 20190116
  2. Candesartan [candesartan] [Concomitant]
     Indication: Hypertension
     Dosage: 4 MILLIGRAMS, QD (EVERY 1 DAY)
     Route: 048
     Dates: start: 20201002, end: 20210122
  3. Clexane [enoxaparin sodium] [Concomitant]
     Indication: Prophylaxis
     Dosage: 20 MILLIGRAMS, QD (EVERY 1 DAY)
     Route: 058
     Dates: start: 20190325, end: 20190327
  4. Covid-19 vaccine [covid-19 vaccine] [Concomitant]
     Indication: COVID-19 prophylaxis
     Dosage: 0.5 MILLILITERS, (1 TOTAL)
     Route: 030
     Dates: start: 20210625, end: 20210625
  5. Comirnaty [tozinameran] [Concomitant]
     Indication: COVID-19 prophylaxis
     Dosage: 30 MICROGRAMS, (1 TOTAL)
     Route: 030
     Dates: start: 20210412, end: 20210412
  6. Comirnaty [tozinameran] [Concomitant]
     Dosage: 30 MICROGRAMS, (1 TOTAL)
     Route: 030
     Dates: start: 20210522, end: 20210522
  7. Fampyra [fampridine] [Concomitant]
     Indication: Gait disturbance
     Dosage: 10 MICROGRAMS, (EVERY 0.5 DAY)
     Route: 048
     Dates: start: 20190708, end: 20190901
  8. METHYLPREDNISOLONE [Concomitant]
     Active Substance: METHYLPREDNISOLONE
     Indication: Multiple sclerosis relapse
     Dosage: 1000 MILLIGRAMS, QD (EVERY 1 DAY)
     Route: 042
     Dates: start: 20190325, end: 20190327
  9. Mirtazapin [mirtazapine] [Concomitant]
     Indication: Depression
     Dosage: 15 MILLIGRAMS, QD (EVERY 1 DAY)
     Route: 048
     Dates: start: 20190708, end: 20190722
  10. Mirtazapin [mirtazapine] [Concomitant]
     Dosage: 7.5 MILLIGRAMS, QD (EVERY 1 DAY)
     Route: 048
     Dates: start: 20190723, end: 20200421
  11. Zopiclon [zopiclone] [Concomitant]
     Indication: Insomnia
     Dosage: 7.5 MILLIGRAMS, (1 AS NECESSARY)
     Route: 048
     Dates: start: 20210122

REACTIONS (1)
  - Cervix carcinoma [Recovered/Resolved]

NARRATIVE: CASE EVENT DATE: 20210727
